FAERS Safety Report 8624274-6 (Version None)
Quarter: 2012Q3

REPORT INFORMATION
  Report Type: 
  Country: None (occurrence: None)
  Receive Date: 20120827
  Receipt Date: 20120821
  Transmission Date: 20120928
  Serious: Yes (Hospitalization, Disabling, Other)
  Sender: FDA-Public Use
  Company Number: US-009507513-2011SP056415

PATIENT

DRUGS (2)
  1. NUVARING [Suspect]
     Indication: CONTRACEPTION
     Dosage: UNK
     Dates: start: 20040323, end: 20091019
  2. NUVARING [Suspect]
     Indication: MENSTRUAL CYCLE MANAGEMENT
     Dosage: UNK
     Dates: start: 20091013, end: 20091201

REACTIONS (7)
  - HYPERINSULINAEMIA [None]
  - PULMONARY EMBOLISM [None]
  - CARDIAC FAILURE [None]
  - ANKLE FRACTURE [None]
  - DEEP VEIN THROMBOSIS [None]
  - PAIN [None]
  - POLYCYSTIC OVARIES [None]
